FAERS Safety Report 5784329-0 (Version None)
Quarter: 2008Q2

REPORT INFORMATION
  Report Type: 
  Country: None (occurrence: None)
  Receive Date: 20080624
  Receipt Date: 20070518
  Transmission Date: 20081010
  Serious: No
  Sender: FDA-Public Use
  Company Number: US-ASTRAZENECA-2007UW12397

PATIENT
  Age: 82 Year
  Sex: Female

DRUGS (4)
  1. PULMICORT-100 [Suspect]
     Indication: ASTHMA
     Route: 055
  2. PULMICORT-100 [Suspect]
     Indication: EMPHYSEMA
     Route: 055
  3. NEXIUM [Concomitant]
     Route: 048
  4. AVAPRO [Concomitant]

REACTIONS (3)
  - CANDIDIASIS [None]
  - DRY MOUTH [None]
  - ILL-DEFINED DISORDER [None]
